FAERS Safety Report 15206612 (Version 1)
Quarter: 2018Q3

REPORT INFORMATION
  Report Type: Spontaneous
  Country: US (occurrence: US)
  Receive Date: 20180727
  Receipt Date: 20180727
  Transmission Date: 20181010
  Serious: No
  Sender: FDA-Public Use
  Company Number: US-PFIZER INC-2018300133

PATIENT
  Sex: Male

DRUGS (1)
  1. DILANTIN?125 [Suspect]
     Active Substance: PHENYTOIN
     Dosage: UNK
     Dates: start: 1967

REACTIONS (1)
  - Hepatomegaly [Unknown]
